FAERS Safety Report 7888433-2 (Version None)
Quarter: 2011Q4

REPORT INFORMATION
  Report Type: 
  Country: None (occurrence: None)
  Receive Date: 20111103
  Receipt Date: 20111025
  Transmission Date: 20120403
  Serious: Yes (Death, Hospitalization)
  Sender: FDA-Public Use
  Company Number: PHHY2011CR93990

PATIENT
  Age: 90 Year
  Sex: Male

DRUGS (1)
  1. ZOLEDRONOC ACID [Suspect]
     Indication: HIP FRACTURE
     Dosage: 5 MG, ANNUALLY
     Route: 042
     Dates: start: 20100701

REACTIONS (2)
  - PNEUMONIA ASPIRATION [None]
  - DEATH [None]
